FAERS Safety Report 19947735 (Version 3)
Quarter: 2022Q4

REPORT INFORMATION
  Report Type: Report from Study
  Country: IN (occurrence: IN)
  Receive Date: 20211012
  Receipt Date: 20221129
  Transmission Date: 20230113
  Serious: Yes (Other)
  Sender: FDA-Public Use
  Company Number: IN-TAKEDA-2021TUS062241

PATIENT
  Sex: Male
  Weight: 74 kg

DRUGS (1)
  1. VEDOLIZUMAB [Suspect]
     Active Substance: VEDOLIZUMAB
     Indication: Colitis ulcerative
     Dosage: 300 MILLIGRAM
     Route: 042

REACTIONS (4)
  - Colitis ulcerative [Recovering/Resolving]
  - Weight decreased [Recovered/Resolved]
  - Anxiety [Unknown]
  - Inappropriate schedule of product administration [Unknown]
